FAERS Safety Report 13030628 (Version 7)
Quarter: 2020Q3

REPORT INFORMATION
  Report Type: Spontaneous
  Country: US (occurrence: US)
  Receive Date: 20161215
  Receipt Date: 20200902
  Transmission Date: 20201102
  Serious: Yes (Hospitalization, Other)
  Sender: FDA-Public Use
  Company Number: US-BIOGEN-2016BI00330264

PATIENT
  Age: 60 Year
  Sex: Female

DRUGS (2)
  1. TYSABRI [Suspect]
     Active Substance: NATALIZUMAB
     Indication: MULTIPLE SCLEROSIS
     Route: 050
     Dates: start: 20080902, end: 20161004
  2. TYSABRI [Suspect]
     Active Substance: NATALIZUMAB
     Route: 050
     Dates: start: 20080902, end: 20170517

REACTIONS (4)
  - Pancreatic carcinoma [Recovered/Resolved with Sequelae]
  - Gastric disorder [Not Recovered/Not Resolved]
  - Decreased immune responsiveness [Unknown]
  - Gastric cancer [Unknown]

NARRATIVE: CASE EVENT DATE: 20161119
